FAERS Safety Report 8571537-9 (Version None)
Quarter: 2012Q3

REPORT INFORMATION
  Report Type: 
  Country: None (occurrence: None)
  Receive Date: 20120806
  Receipt Date: 20120730
  Transmission Date: 20120928
  Serious: No
  Sender: FDA-Public Use
  Company Number: PHHY2012DE066425

PATIENT
  Sex: Male

DRUGS (4)
  1. PANTOPRAZOLE [Concomitant]
     Dates: start: 20110324
  2. TASIGNA [Suspect]
     Dosage: 800 MG, DAILY
     Route: 048
  3. TAMSULOSIN HYDROCHLORIDE [Concomitant]
  4. LEVOFLOXACIN [Concomitant]
     Dates: start: 20120601, end: 20120601

REACTIONS (2)
  - FOREIGN BODY SENSATION IN EYES [None]
  - PHOTOPSIA [None]
